FAERS Safety Report 10814048 (Version 4)
Quarter: 2015Q3

REPORT INFORMATION
  Report Type: Spontaneous
  Country: US (occurrence: US)
  Receive Date: 20150218
  Receipt Date: 20150902
  Transmission Date: 20151125
  Serious: Yes (Other)
  Sender: FDA-Public Use
  Company Number: US-BAYER-2015-022662

PATIENT
  Age: 32 Year
  Sex: Female
  Weight: 104.76 kg

DRUGS (2)
  1. ADIPEX-P [Concomitant]
     Active Substance: PHENTERMINE HYDROCHLORIDE
     Dosage: UNK
     Dates: start: 20120209
  2. MIRENA [Suspect]
     Active Substance: LEVONORGESTREL
     Indication: CONTRACEPTION
     Dosage: 20 MCG/24HR, CONT
     Route: 015
     Dates: start: 20081226, end: 20120209

REACTIONS (7)
  - Embedded device [None]
  - Genital haemorrhage [None]
  - Infection [None]
  - Medical device discomfort [None]
  - Device dislocation [None]
  - Injury [None]
  - Pelvic pain [None]

NARRATIVE: CASE EVENT DATE: 201201
